FAERS Safety Report 7525988-1 (Version None)
Quarter: 2011Q2

REPORT INFORMATION
  Report Type: 
  Country: None (occurrence: None)
  Receive Date: 20110606
  Receipt Date: 20080828
  Transmission Date: 20111010
  Serious: Yes (Death, Hospitalization, Other)
  Sender: FDA-Public Use
  Company Number: US-BAYER-2011-009634

PATIENT
  Age: 73 Year
  Sex: Male
  Weight: 75 kg

DRUGS (17)
  1. LASIX [Concomitant]
     Dosage: 20 MG
     Route: 048
     Dates: start: 20060608, end: 20060611
  2. VASOPRESSIN [Concomitant]
     Dosage: 0.2 UNITS/HR
     Route: 042
     Dates: start: 20060612, end: 20060612
  3. KDUR [Concomitant]
     Dosage: 20 MEQ
     Route: 048
     Dates: start: 20060609, end: 20060611
  4. PHENYLEPHRINE HCL [Concomitant]
     Dosage: 200 MCG
     Route: 042
     Dates: start: 20060612, end: 20060612
  5. AMIODARONE HCL [Concomitant]
     Dosage: 150
     Route: 042
     Dates: start: 20060612
  6. PROTAMINE SULFATE [Concomitant]
     Dosage: 2 ML
     Route: 042
     Dates: start: 20060612, end: 20060612
  7. ANCEF [Concomitant]
     Dosage: 3 GMS
     Route: 042
     Dates: start: 20060612, end: 20060612
  8. HEPARIN [Concomitant]
     Dosage: 5,000 UNITS
     Route: 042
     Dates: start: 20060612, end: 20060612
  9. PROTAMINE SULFATE [Concomitant]
     Dosage: 250 MG
     Route: 041
     Dates: start: 20060612, end: 20060612
  10. TRASYLOL [Suspect]
     Indication: ECHOCARDIOGRAM
     Dosage: 200 ML LOADING DOSE
     Route: 042
     Dates: start: 20060612, end: 20060612
  11. PRILOSEC [Concomitant]
     Dosage: 20 MG, UNK
     Route: 048
  12. AMICAR [Concomitant]
     Dosage: 5
     Route: 042
     Dates: start: 20060612, end: 20060612
  13. INSULIN [Concomitant]
     Dosage: ILLEGIBLE + 20 UNITS
     Route: 042
     Dates: start: 20060612, end: 20060612
  14. TRASYLOL [Suspect]
     Indication: AORTIC VALVE REPLACEMENT
     Dosage: 1 ML TEST DOSE
     Route: 042
     Dates: start: 20060612
  15. FOSAMAX [Concomitant]
     Dosage: 70 MG EVERY FRIDAY
     Route: 048
  16. ASPIRIN [Concomitant]
  17. TRASYLOL [Suspect]
     Dosage: 50 ML/HR
     Dates: start: 20060606, end: 20060606

REACTIONS (11)
  - DEATH [None]
  - MULTI-ORGAN FAILURE [None]
  - RENAL INJURY [None]
  - UNEVALUABLE EVENT [None]
  - FEAR [None]
  - RENAL IMPAIRMENT [None]
  - RENAL FAILURE [None]
  - STRESS [None]
  - ANXIETY [None]
  - PAIN [None]
  - EMOTIONAL DISTRESS [None]
